FAERS Safety Report 9947451 (Version 1)
Quarter: 2014Q1

REPORT INFORMATION
  Report Type: Report from Study
  Country: US (occurrence: US)
  Receive Date: 20140303
  Receipt Date: 20140303
  Transmission Date: 20141002
  Serious: No
  Sender: FDA-Public Use
  Company Number: US-ABBVIE-13P-163-1062412-00

PATIENT
  Age: 65 Year
  Sex: Female
  Weight: 91.71 kg

DRUGS (8)
  1. HUMIRA [Suspect]
     Indication: CROHN^S DISEASE
     Route: 058
     Dates: start: 20130308, end: 20130308
  2. UNKNOWN MEDICATION [Concomitant]
     Indication: HYPERTENSION
  3. DIURETICS [Concomitant]
     Indication: JOINT SWELLING
  4. ANALGESICS [Concomitant]
     Indication: CROHN^S DISEASE
  5. NEXIUM [Concomitant]
     Indication: CROHN^S DISEASE
  6. FISH OIL [Concomitant]
     Indication: CARDIAC DISORDER
  7. ZETIA [Concomitant]
     Indication: BLOOD CHOLESTEROL INCREASED
  8. SLEEPING PILL [Concomitant]
     Indication: INSOMNIA

REACTIONS (3)
  - Abdominal discomfort [Recovering/Resolving]
  - Diarrhoea [Recovering/Resolving]
  - Injection site pain [Recovered/Resolved]
